FAERS Safety Report 13151402 (Version 1)
Quarter: 2017Q1

REPORT INFORMATION
  Report Type: Spontaneous
  Country: US (occurrence: US)
  Receive Date: 20170125
  Receipt Date: 20170125
  Transmission Date: 20170428
  Serious: Yes (Disabling)
  Sender: FDA-Public Use
  Company Number: None

PATIENT
  Sex: Female

DRUGS (2)
  1. DEBROX [Suspect]
     Active Substance: CARBAMIDE PEROXIDE
     Indication: EXCESSIVE CERUMEN PRODUCTION
     Dosage: 5-10 DROPS INTO EAR TWICE DAILY
     Dates: start: 201610
  2. LEVOTHYOD [Concomitant]

REACTIONS (2)
  - Deafness [None]
  - Tinnitus [None]

NARRATIVE: CASE EVENT DATE: 20161015
